FAERS Safety Report 6276498-3 (Version None)
Quarter: 2009Q3

REPORT INFORMATION
  Report Type: 
  Country: None (occurrence: None)
  Receive Date: 20090722
  Receipt Date: 20090711
  Transmission Date: 20100115
  Serious: Yes (Other)
  Sender: FDA-Public Use
  Company Number: US-NOVOPROD-289332

PATIENT
  Sex: Female

DRUGS (23)
  1. NOVOSEVEN [Suspect]
     Indication: GASTROINTESTINAL HAEMORRHAGE
     Dosage: UNKNOWN
     Dates: start: 20090615, end: 20090601
  2. NOVOSEVEN [Suspect]
     Dates: start: 20090601, end: 20090621
  3. ACTIGALL [Concomitant]
     Indication: DRUG USE FOR UNKNOWN INDICATION
     Dosage: 300 MG, BID
     Route: 048
  4. ATIVAN [Concomitant]
     Indication: ANXIETY
     Dosage: 1 MG, EVER 6 HRS PRN
     Route: 048
  5. ATIVAN [Concomitant]
     Indication: NAUSEA
  6. BIOTIN [Concomitant]
     Indication: DRUG USE FOR UNKNOWN INDICATION
     Dosage: 15 ML, TID (SWISH AND SPIT)
     Route: 048
  7. BUDESONIDE [Concomitant]
     Indication: DRUG USE FOR UNKNOWN INDICATION
     Dosage: 9 MG, QD
     Route: 048
  8. CELEXA [Concomitant]
     Indication: DRUG USE FOR UNKNOWN INDICATION
     Dosage: 20 MG, QD
     Route: 048
  9. CELEXA [Concomitant]
     Dosage: 30 MG, QD
     Route: 048
  10. CIPROFLOXACIN [Concomitant]
     Indication: INFECTION
     Dosage: 500 MG, BID
     Route: 048
  11. FLAGYL [Concomitant]
     Indication: DRUG USE FOR UNKNOWN INDICATION
     Dosage: 500 MG, TID
     Route: 048
  12. LOMOTIL                            /00034001/ [Concomitant]
     Indication: DRUG USE FOR UNKNOWN INDICATION
  13. METHADONE HCL [Concomitant]
     Indication: DRUG USE FOR UNKNOWN INDICATION
     Dosage: 10 MG, BID
  14. MYCOPHENOLATE MOFETIL [Concomitant]
     Indication: DRUG USE FOR UNKNOWN INDICATION
     Dosage: 1000 MG, BID
  15. OSCAL D                            /00944201/ [Concomitant]
     Indication: DRUG USE FOR UNKNOWN INDICATION
     Dosage: 1 TAB, BID
     Route: 048
  16. PREDNISONE [Concomitant]
     Indication: DRUG USE FOR UNKNOWN INDICATION
     Dosage: 20 MG, BID
  17. PROTONIX                           /01263201/ [Concomitant]
     Indication: DRUG USE FOR UNKNOWN INDICATION
     Dosage: 40 MG, QD
  18. PROVERA [Concomitant]
     Indication: DRUG USE FOR UNKNOWN INDICATION
     Dosage: 20 MG, QD
  19. PHENAZOPYRIDINE HCL TAB [Concomitant]
     Indication: DRUG USE FOR UNKNOWN INDICATION
     Dosage: 200 MG, BID
  20. VALACYCLOVIR HCL [Concomitant]
     Indication: DRUG USE FOR UNKNOWN INDICATION
     Dosage: 500 MG, QD
  21. VORICONAZOLE [Concomitant]
     Indication: DRUG USE FOR UNKNOWN INDICATION
     Dosage: 200 MG, BID
  22. TYLENOL W/ CODEINE NO. 3 [Concomitant]
     Indication: PAIN
     Dosage: 1 TAB, EVERY 6 HRS
     Route: 048
  23. ZOFRAN [Concomitant]
     Indication: NAUSEA
     Dosage: 8 MG, EVERY 8 HRS PRN
     Route: 048

REACTIONS (2)
  - GASTROINTESTINAL HAEMORRHAGE [None]
  - ISCHAEMIC STROKE [None]
